FAERS Safety Report 10285063 (Version 1)
Quarter: 2014Q3

REPORT INFORMATION
  Report Type: Report from Study
  Country: US (occurrence: US)
  Receive Date: 20140708
  Receipt Date: 20140708
  Transmission Date: 20150326
  Serious: Yes (Hospitalization)
  Sender: FDA-Public Use
  Company Number: US-PFIZER INC-2014185612

PATIENT
  Age: 65 Year
  Sex: Female

DRUGS (8)
  1. ZOSYN [Suspect]
     Active Substance: PIPERACILLIN SODIUM\TAZOBACTAM SODIUM
  2. PRAVASTATIN SODIUM. [Suspect]
     Active Substance: PRAVASTATIN SODIUM
     Indication: ACUTE MYELOID LEUKAEMIA
     Dosage: 1280 MG, DAILY
     Dates: start: 20140527, end: 20140606
  3. PROTONIX [Suspect]
     Active Substance: PANTOPRAZOLE SODIUM
  4. GENTAMICIN [Suspect]
     Active Substance: GENTAMICIN
  5. CYTARABINE. [Suspect]
     Active Substance: CYTARABINE
     Indication: ACUTE MYELOID LEUKAEMIA
     Dosage: 3 G
     Dates: start: 20140527, end: 20140602
  6. KEFLEX [Suspect]
     Active Substance: CEPHALEXIN
  7. ALLOPURINOL. [Suspect]
     Active Substance: ALLOPURINOL
  8. IDARUBICIN HCL [Suspect]
     Active Substance: IDARUBICIN HYDROCHLORIDE
     Indication: ACUTE MYELOID LEUKAEMIA
     Dosage: 24.12 MG
     Dates: start: 20140527, end: 20140601

REACTIONS (1)
  - Renal failure acute [Not Recovered/Not Resolved]

NARRATIVE: CASE EVENT DATE: 20140604
